FAERS Safety Report 4809609-4 (Version None)
Quarter: 2005Q4

REPORT INFORMATION
  Report Type: 
  Country: None (occurrence: None)
  Receive Date: 20051021
  Receipt Date: 20051010
  Transmission Date: 20060501
  Serious: Yes (Hospitalization, Other)
  Sender: FDA-Public Use
  Company Number: 2004BI001565

PATIENT
  Age: 50 Year
  Sex: Female
  Weight: 104.3273 kg

DRUGS (3)
  1. AVONEX [Suspect]
     Indication: MULTIPLE SCLEROSIS
     Dosage: 30 UG; QW; IM
     Route: 030
     Dates: start: 20040415, end: 20041102
  2. AVONEX [Suspect]
     Indication: MULTIPLE SCLEROSIS
     Dosage: 30 UG; QW; IM
     Route: 030
     Dates: start: 20050725
  3. BLOOD PRESSURE PILLS (NOS) [Concomitant]

REACTIONS (11)
  - CHEST X-RAY ABNORMAL [None]
  - GASTRIC BYPASS [None]
  - IATROGENIC INJURY [None]
  - MULTIPLE SCLEROSIS [None]
  - OPEN WOUND [None]
  - PERITONITIS [None]
  - POST PROCEDURAL COMPLICATION [None]
  - PULMONARY THROMBOSIS [None]
  - SCAN ABDOMEN ABNORMAL [None]
  - SMALL INTESTINAL PERFORATION [None]
  - WOUND INFECTION STAPHYLOCOCCAL [None]
